FAERS Safety Report 8909762 (Version 4)
Quarter: 2012Q4

REPORT INFORMATION
  Report Type: 
  Country: US (occurrence: US)
  Receive Date: 20121115
  Receipt Date: 20121130
  Transmission Date: 20130627
  Serious: Yes (Life-Threatening, Hospitalization, Other)
  Sender: FDA-Public Use
  Company Number: US-JNJFOC-20121106216

PATIENT
  Age: 59 Year
  Sex: Female
  Weight: 47 kg

DRUGS (17)
  1. XARELTO [Suspect]
     Indication: THROMBOSIS PROPHYLAXIS
     Route: 048
     Dates: start: 20120813, end: 20120821
  2. XARELTO [Suspect]
     Indication: ORTHOPAEDIC PROCEDURE
     Route: 048
     Dates: start: 20120813, end: 20120821
  3. ASPIRIN [Suspect]
     Indication: PRODUCT USED FOR UNKNOWN INDICATION
  4. PLAVIX [Suspect]
     Indication: PRODUCT USED FOR UNKNOWN INDICATION
  5. ALBUTEROL [Concomitant]
  6. AMBIEN [Concomitant]
  7. CARDIZEM [Concomitant]
  8. DOCUSATE [Concomitant]
  9. INSULIN [Concomitant]
  10. KEPPRA [Concomitant]
  11. MILK OF MAGNESIA [Concomitant]
  12. PERCOCET [Concomitant]
  13. PREDNISONE [Concomitant]
  14. PROTONIX [Concomitant]
  15. GUAIFENESIN [Concomitant]
  16. TYLENOL [Concomitant]
  17. XANAX [Concomitant]

REACTIONS (2)
  - Gastrointestinal haemorrhage [Recovered/Resolved]
  - Incision site haemorrhage [Recovered/Resolved]
